FAERS Safety Report 16228766 (Version 3)
Quarter: 2019Q2

REPORT INFORMATION
  Report Type: Spontaneous
  Country: AT (occurrence: AT)
  Receive Date: 20190423
  Receipt Date: 20190508
  Transmission Date: 20190711
  Serious: Yes (Hospitalization, Other)
  Sender: FDA-Public Use
  Company Number: PHHY2019AT089617

PATIENT
  Sex: Female
  Weight: 200 kg

DRUGS (1)
  1. COSENTYX [Suspect]
     Active Substance: SECUKINUMAB
     Indication: PRODUCT USED FOR UNKNOWN INDICATION
     Dosage: 150 MG, UNK
     Route: 065
     Dates: start: 201804, end: 201812

REACTIONS (9)
  - C-reactive protein increased [Recovering/Resolving]
  - Folliculitis [Recovering/Resolving]
  - Sepsis [Unknown]
  - Staphylococcal skin infection [Recovering/Resolving]
  - Subcutaneous abscess [Recovering/Resolving]
  - Arthralgia [Recovering/Resolving]
  - Scratch [Recovering/Resolving]
  - Furuncle [Recovering/Resolving]
  - Pyrexia [Recovering/Resolving]

NARRATIVE: CASE EVENT DATE: 20181227
